FAERS Safety Report 6264402-3 (Version None)
Quarter: 2009Q3

REPORT INFORMATION
  Report Type: 
  Country: None (occurrence: None)
  Receive Date: 20090710
  Receipt Date: 20090706
  Transmission Date: 20100115
  Serious: Yes (Hospitalization)
  Sender: FDA-Public Use
  Company Number: B0582546A

PATIENT
  Sex: Female
  Weight: 60 kg

DRUGS (7)
  1. LAPATINIB [Suspect]
     Indication: BREAST CANCER
     Dosage: 150MG PER DAY
     Route: 048
     Dates: start: 20090502
  2. TRASTUZUMAB [Suspect]
     Indication: BREAST CANCER
     Route: 042
     Dates: start: 20090502
  3. PACLITAXEL [Suspect]
     Indication: BREAST CANCER
     Dosage: 80MGM2 WEEKLY
     Route: 042
     Dates: start: 20090427
  4. COUGH SYRUP [Concomitant]
     Indication: COUGH
     Dosage: 1ML PER DAY
     Route: 048
     Dates: start: 20090706, end: 20090706
  5. METOCLOPRAMIDE [Concomitant]
     Indication: VOMITING
     Dosage: 10MG PER DAY
     Route: 042
     Dates: start: 20090706, end: 20090706
  6. TRAMADOL HCL [Concomitant]
     Indication: HEADACHE
     Dosage: 50MG PER DAY
     Dates: start: 20090706, end: 20090706
  7. MORPHINE [Concomitant]
     Indication: HEADACHE
     Dosage: 5MG PER DAY
     Dates: start: 20090706, end: 20090706

REACTIONS (3)
  - PARONYCHIA [None]
  - PNEUMONIA [None]
  - PYREXIA [None]
